FAERS Safety Report 12521735 (Version 1)
Quarter: 2016Q3

REPORT INFORMATION
  Report Type: Spontaneous
  Country: FR (occurrence: FR)
  Receive Date: 20160701
  Receipt Date: 20160701
  Transmission Date: 20161109
  Serious: Yes (Hospitalization)
  Sender: FDA-Public Use
  Company Number: FR-ASTRAZENECA-2016SE70779

PATIENT
  Age: 14407 Day
  Sex: Male

DRUGS (10)
  1. INEXIUM [Suspect]
     Active Substance: ESOMEPRAZOLE
     Indication: GASTROOESOPHAGEAL REFLUX DISEASE
     Route: 048
     Dates: start: 20160601
  2. PYRIDOXINE [Suspect]
     Active Substance: PYRIDOXINE
     Indication: ALCOHOLISM
     Route: 042
     Dates: start: 20160602
  3. ZAMUDOL [Suspect]
     Active Substance: TRAMADOL HYDROCHLORIDE
     Indication: PAIN
     Route: 048
     Dates: start: 20160601
  4. DOLIPRANE [Suspect]
     Active Substance: ACETAMINOPHEN
     Indication: PAIN
     Route: 048
     Dates: start: 20160601
  5. AUGMENTIN [Suspect]
     Active Substance: AMOXICILLIN\CLAVULANATE POTASSIUM
     Indication: ANTIBIOTIC PROPHYLAXIS
     Route: 048
     Dates: start: 20160602, end: 20160603
  6. LOVENOX [Suspect]
     Active Substance: ENOXAPARIN SODIUM
     Indication: PROPHYLAXIS
     Route: 065
     Dates: start: 20160601
  7. PRINCI-B [Suspect]
     Active Substance: CYANOCOBALAMIN\PYRIDOXINE HYDROCHLORIDE\THIAMINE
     Indication: ALCOHOLISM
     Route: 048
     Dates: start: 20160602
  8. AMOXICILLINE SANDOZ [Suspect]
     Active Substance: AMOXICILLIN
     Indication: ANTIBIOTIC PROPHYLAXIS
     Route: 042
     Dates: start: 20160601
  9. SERESTA [Suspect]
     Active Substance: OXAZEPAM
     Indication: ALCOHOLISM
     Dosage: IF NEEDED
     Route: 048
     Dates: start: 20160601
  10. BENERVA [Suspect]
     Active Substance: THIAMINE
     Indication: ALCOHOLISM
     Route: 042
     Dates: start: 20160601

REACTIONS (4)
  - Rash macular [Not Recovered/Not Resolved]
  - Erythema [Unknown]
  - Purpura [Unknown]
  - Lymphopenia [Unknown]

NARRATIVE: CASE EVENT DATE: 20160603
